FAERS Safety Report 13850902 (Version 1)
Quarter: 2017Q3

REPORT INFORMATION
  Report Type: Spontaneous
  Country: IT (occurrence: IT)
  Receive Date: 20170809
  Receipt Date: 20170809
  Transmission Date: 20171127
  Serious: Yes (Other)
  Sender: FDA-Public Use
  Company Number: IT-HQ SPECIALTY-IT-2017INT000286

PATIENT
  Age: 68 Year
  Sex: Female

DRUGS (6)
  1. PACLITAXEL. [Suspect]
     Active Substance: PACLITAXEL
     Dosage: CYCLE 2
  2. PACLITAXEL. [Suspect]
     Active Substance: PACLITAXEL
     Dosage: CYCLE 5
  3. PACLITAXEL. [Suspect]
     Active Substance: PACLITAXEL
     Dosage: CYCLE 3
  4. PACLITAXEL. [Suspect]
     Active Substance: PACLITAXEL
     Dosage: CYCLE 4
  5. PACLITAXEL. [Suspect]
     Active Substance: PACLITAXEL
     Indication: BREAST CANCER
     Dosage: CYCLE 1
  6. PACLITAXEL. [Suspect]
     Active Substance: PACLITAXEL
     Dosage: CYCLE 6

REACTIONS (2)
  - Myiasis [Recovered/Resolved]
  - Onycholysis [Recovering/Resolving]
